FAERS Safety Report 6324523-3 (Version None)
Quarter: 2009Q3

REPORT INFORMATION
  Report Type: 
  Country: None (occurrence: None)
  Receive Date: 20090824
  Receipt Date: 20090821
  Transmission Date: 20100115
  Serious: Yes (Death, Life-Threatening)
  Sender: FDA-Public Use
  Company Number: JP-JNJFOC-20090500194

PATIENT
  Sex: Female

DRUGS (19)
  1. DUROTEP MT PATCH [Suspect]
     Route: 062
  2. DUROTEP MT PATCH [Suspect]
     Route: 062
  3. DUROTEP MT PATCH [Suspect]
     Indication: CANCER PAIN
     Route: 062
  4. OXYCONTIN [Concomitant]
     Indication: CANCER PAIN
     Route: 048
  5. OXINORM [Concomitant]
     Route: 048
  6. OXINORM [Concomitant]
     Indication: CANCER PAIN
     Route: 048
  7. RINDERON [Concomitant]
     Indication: ANALGESIC THERAPY
     Route: 048
  8. TAKEPRON [Concomitant]
     Indication: PROPHYLAXIS
     Route: 048
  9. ALDACTONE [Concomitant]
     Indication: PROPHYLAXIS
     Route: 048
  10. YM [Concomitant]
     Indication: PROPHYLAXIS
     Route: 048
  11. GASMOTIN [Concomitant]
     Indication: PROPHYLAXIS
     Route: 048
  12. ZYPREXA [Concomitant]
     Indication: PROPHYLAXIS
     Route: 048
  13. VOLTAREN [Concomitant]
     Indication: ANALGESIC THERAPY
     Route: 054
  14. DORMICUM [Concomitant]
     Route: 058
  15. DORMICUM [Concomitant]
     Route: 058
  16. DORMICUM [Concomitant]
     Route: 058
  17. FENTANYL [Concomitant]
     Dosage: AS NEEDED
     Route: 058
  18. FENTANYL [Concomitant]
     Indication: ANALGESIC THERAPY
     Dosage: AS NEEDED
     Route: 058
  19. BIODIASTASE-NATURAL AGENTS COMBINED DRUG [Concomitant]
     Indication: PROPHYLAXIS
     Route: 048

REACTIONS (3)
  - DELIRIUM [None]
  - PANCREATIC CARCINOMA [None]
  - WRONG TECHNIQUE IN DRUG USAGE PROCESS [None]
